FAERS Safety Report 18990690 (Version 3)
Quarter: 2021Q4

REPORT INFORMATION
  Report Type: Report from Study
  Country: US (occurrence: US)
  Receive Date: 20210310
  Receipt Date: 20211025
  Transmission Date: 20220303
  Serious: Yes (Other)
  Sender: FDA-Public Use
  Company Number: US-JNJFOC-20210309517

PATIENT
  Age: 57 Year
  Sex: Female
  Weight: 59.93 kg

DRUGS (15)
  1. SPRAVATO [Suspect]
     Active Substance: ESKETAMINE
     Indication: Depression
     Dosage: 1 DOSE
     Dates: start: 20200522, end: 20200522
  2. SPRAVATO [Suspect]
     Active Substance: ESKETAMINE
     Dosage: 1 DOSE
     Dates: start: 20210303, end: 20210303
  3. SPRAVATO [Suspect]
     Active Substance: ESKETAMINE
     Dosage: 5 DOSES
     Dates: start: 20200529, end: 20200622
  4. SPRAVATO [Suspect]
     Active Substance: ESKETAMINE
     Dosage: 1 DOSE
     Dates: start: 20200706, end: 20200706
  5. SPRAVATO [Suspect]
     Active Substance: ESKETAMINE
     Dosage: 11 DOSES
     Dates: start: 20200713, end: 20200808
  6. SPRAVATO [Suspect]
     Active Substance: ESKETAMINE
     Dosage: 1 DOSE
     Dates: start: 20200828, end: 20200828
  7. SPRAVATO [Suspect]
     Active Substance: ESKETAMINE
     Dosage: 6 DOSES
     Dates: start: 20200831, end: 20200924
  8. SPRAVATO [Suspect]
     Active Substance: ESKETAMINE
     Dosage: 2 DOSES
     Dates: start: 20200928, end: 20201003
  9. SPRAVATO [Suspect]
     Active Substance: ESKETAMINE
     Dosage: 3 DOSES
     Dates: start: 20201014, end: 20201019
  10. SPRAVATO [Suspect]
     Active Substance: ESKETAMINE
     Dosage: 1 DOSE
     Dates: start: 20201022, end: 20201022
  11. SPRAVATO [Suspect]
     Active Substance: ESKETAMINE
     Dosage: 6 DOSE
     Dates: start: 20201026, end: 20201214
  12. SPRAVATO [Suspect]
     Active Substance: ESKETAMINE
     Dosage: 3 DOSES
     Dates: start: 20210125, end: 20210201
  13. SPRAVATO [Suspect]
     Active Substance: ESKETAMINE
     Dosage: 6 DOSES
     Dates: start: 20210204, end: 20210226
  14. COVID-19 VACCINE [Concomitant]
     Dosage: COVID VACCINE #1
     Dates: start: 20210303, end: 20210303
  15. RISPERDAL [Concomitant]
     Active Substance: RISPERIDONE

REACTIONS (2)
  - Dissociation [Recovered/Resolved]
  - Catatonia [Recovered/Resolved]

NARRATIVE: CASE EVENT DATE: 20210303
